FAERS Safety Report 4317625-4 (Version None)
Quarter: 2004Q1

REPORT INFORMATION
  Report Type: 
  Country: None (occurrence: None)
  Receive Date: 20040315
  Receipt Date: 20040303
  Transmission Date: 20041129
  Serious: Yes (Other)
  Sender: FDA-Public Use
  Company Number: GB-BRISTOL-MYERS SQUIBB COMPANY-12527768

PATIENT
  Age: 44 Year
  Sex: Male

DRUGS (4)
  1. CYCLOPHOSPHAMIDE [Suspect]
     Indication: NON-HODGKIN'S LYMPHOMA
     Dates: start: 20040210, end: 20040210
  2. DOXORUBICIN HCL [Concomitant]
     Indication: NON-HODGKIN'S LYMPHOMA
     Dates: start: 20040210, end: 20040210
  3. VINCRISTINE [Concomitant]
     Indication: NON-HODGKIN'S LYMPHOMA
     Dates: start: 20040210, end: 20040210
  4. PREDNISONE [Concomitant]
     Indication: NON-HODGKIN'S LYMPHOMA
     Dates: start: 20040210, end: 20040210

REACTIONS (1)
  - ACUTE RESPIRATORY DISTRESS SYNDROME [None]
